FAERS Safety Report 7089120-3 (Version None)
Quarter: 2010Q4

REPORT INFORMATION
  Report Type: 
  Country: None (occurrence: None)
  Receive Date: 20101108
  Receipt Date: 20101028
  Transmission Date: 20110411
  Serious: Yes (Hospitalization, Other)
  Sender: FDA-Public Use
  Company Number: SE-JNJFOC-20100809080

PATIENT
  Sex: Female

DRUGS (5)
  1. REMICADE [Suspect]
     Indication: CROHN'S DISEASE
     Route: 042
  2. REMICADE [Suspect]
     Route: 042
  3. REMICADE [Suspect]
     Route: 042
  4. FERINJECT [Suspect]
     Indication: ILL-DEFINED DISORDER
     Route: 042
  5. AZATHIOPRINE [Concomitant]

REACTIONS (8)
  - ATYPICAL MYCOBACTERIAL INFECTION [None]
  - HEPATOTOXICITY [None]
  - OBSTRUCTIVE AIRWAYS DISORDER [None]
  - RASH PRURITIC [None]
  - RESPIRATORY DISORDER [None]
  - STAPHYLOCOCCAL INFECTION [None]
  - SUBCUTANEOUS NODULE [None]
  - URTICARIA [None]
